FAERS Safety Report 14198542 (Version 11)
Quarter: 2018Q2

REPORT INFORMATION
  Report Type: Report from Study
  Country: US (occurrence: US)
  Receive Date: 20171117
  Receipt Date: 20180622
  Transmission Date: 20180711
  Serious: Yes (Hospitalization)
  Sender: FDA-Public Use
  Company Number: US-ROCHE-2019658

PATIENT
  Age: 23 Year
  Sex: Female
  Weight: 63.1 kg

DRUGS (36)
  1. PNEUMOCOCCAL VACCINE POLYVALENT NOS [Suspect]
     Active Substance: PNEUMOCOCCAL VACCINE POLYVALENT
     Indication: PNEUMOCOCCAL IMMUNISATION
     Route: 030
     Dates: start: 20160329
  2. TRAMADOL. [Concomitant]
     Active Substance: TRAMADOL
     Indication: PAIN
     Dosage: EVERY 8 HOURS AS NEEDED
     Route: 048
     Dates: start: 2015
  3. VITAMIN B12 [Concomitant]
     Active Substance: CYANOCOBALAMIN
     Route: 048
  4. VITAMIN B12 [Concomitant]
     Active Substance: CYANOCOBALAMIN
     Indication: VITAMIN B12 DECREASED
     Route: 048
     Dates: start: 20151222
  5. PEPCID (UNITED STATES) [Concomitant]
     Indication: DYSPEPSIA
     Route: 048
     Dates: start: 20170328
  6. PREDNISONE. [Concomitant]
     Active Substance: PREDNISONE
     Route: 065
  7. PANTOPRAZOLE [Concomitant]
     Active Substance: PANTOPRAZOLE
     Indication: VOMITING
     Route: 048
     Dates: start: 20171101, end: 20171107
  8. METHYLPREDNISOLONE. [Suspect]
     Active Substance: METHYLPREDNISOLONE
     Indication: PREMEDICATION
     Dosage: DATE OF MOST RECENT DOSE PRIOR TO AE ONSET ON 19/OCT/2017 WAS 100 MG
     Route: 042
     Dates: start: 20151210
  9. FLONASE [Concomitant]
     Active Substance: FLUTICASONE PROPIONATE
     Indication: PHARYNGITIS
     Route: 050
     Dates: start: 20161125
  10. BELVIQ [Concomitant]
     Active Substance: LORCASERIN HYDROCHLORIDE
     Indication: WEIGHT INCREASED
     Route: 048
     Dates: start: 201610
  11. VALIUM [Concomitant]
     Active Substance: DIAZEPAM
     Indication: ANXIETY
     Dosage: AS NEEDED TWICE A DAY.
     Route: 048
     Dates: start: 2015
  12. ALBUTEROL. [Concomitant]
     Active Substance: ALBUTEROL
     Indication: ASTHMA
     Dosage: ALBUTEROL SULFATE HFA 108 (90 BASE) MCG/ACT AEROSOL SOULTION 2 PUFFS AS NEEDED INHALATIION EVERY SIX
     Route: 050
     Dates: start: 20170228
  13. PERCOCET [Concomitant]
     Active Substance: ACETAMINOPHEN\OXYCODONE HYDROCHLORIDE
     Indication: HEADACHE
     Dosage: EVERY 6 HOURS AS NEEDED
     Route: 048
     Dates: start: 20171107
  14. OCRELIZUMAB. [Suspect]
     Active Substance: OCRELIZUMAB
     Indication: RELAPSING-REMITTING MULTIPLE SCLEROSIS
     Dosage: MOST RECENT DOSE OF OCRELIZUMAB ADMINISTERED: 600 MG ON  19/OCT/2017
     Route: 042
     Dates: start: 20151210
  15. LO LOESTRIN FE [Concomitant]
     Active Substance: ETHINYL ESTRADIOL\NORETHINDRONE ACETATE
     Indication: CONTRACEPTION
     Route: 048
     Dates: start: 201610
  16. ALEVE [Concomitant]
     Active Substance: NAPROXEN SODIUM
     Indication: BACK PAIN
     Route: 048
     Dates: start: 20170824
  17. ACYCLOVIR. [Concomitant]
     Active Substance: ACYCLOVIR
     Indication: HERPES ZOSTER
     Route: 048
     Dates: start: 20171023, end: 20171031
  18. NEURONTIN [Concomitant]
     Active Substance: GABAPENTIN
     Route: 048
     Dates: start: 20171101, end: 20171107
  19. IBUPROFEN. [Concomitant]
     Active Substance: IBUPROFEN
     Indication: PAIN
  20. INFLUENZA VIRUS VACCINE [Suspect]
     Active Substance: INFLUENZA VIRUS VACCINE
     Indication: INFLUENZA IMMUNISATION
     Dosage: DATE OF MOST RECENT DOSE OF INFLUENZA VACCINE PRIOR TO AE ONSET ON 03/MAR/2016
     Route: 030
     Dates: start: 20160303
  21. MELOXICAM. [Concomitant]
     Active Substance: MELOXICAM
     Indication: BACK PAIN
     Route: 048
     Dates: start: 20170831
  22. IMMUNOCYANINE [Suspect]
     Active Substance: KEYHOLE LIMPET HEMOCYANIN
     Indication: IMMUNE ENHANCEMENT THERAPY
     Dosage: DATE OF MOST RECENT DOSE OF KLH PRIOR TO AE ONSET ON 27/APR/2017 WAS 1 MG
     Route: 058
     Dates: start: 20160303
  23. PROZAC [Concomitant]
     Active Substance: FLUOXETINE HYDROCHLORIDE
     Indication: DEPRESSION
     Route: 048
     Dates: start: 201609
  24. MAGIC SWIZZLE (BENADRYL, VISCOUS LIDOCAINE, MAALOX) [Concomitant]
     Indication: OROPHARYNGEAL PAIN
     Route: 048
     Dates: start: 20171101, end: 20171107
  25. SOLU-MEDROL [Concomitant]
     Active Substance: METHYLPREDNISOLONE SODIUM SUCCINATE
     Indication: MULTIPLE SCLEROSIS RELAPSE
     Route: 042
     Dates: start: 20171101, end: 20171107
  26. DIPHTHERIA AND TETANUS TOXOIDS AND PERTUSSIS VACCINE ADSORBED NOS [Suspect]
     Active Substance: DIPHTHERIA AND TETANUS TOXOIDS AND PERTUSSIS VACCINE
     Indication: PROPHYLAXIS
     Dosage: DATE OF MOST RECENT DOSE OF TETANUS, DIPHTHERIA AND PERTUSSIS PRIOR TO AE ONSET ON 03/MAR/2016
     Route: 030
     Dates: start: 20160303
  27. SINGULAIR [Concomitant]
     Active Substance: MONTELUKAST SODIUM
     Indication: ASTHMA
     Route: 048
     Dates: start: 20170228
  28. SYMBICORT [Concomitant]
     Active Substance: BUDESONIDE\FORMOTEROL FUMARATE DIHYDRATE
     Indication: ASTHMA
     Dosage: 80-4.5 MCG/ACT AEROSOL 2 PUFFS INHALATION.
     Route: 050
     Dates: start: 20170328
  29. MEDROL [Concomitant]
     Active Substance: METHYLPREDNISOLONE
  30. IBUPROFEN. [Concomitant]
     Active Substance: IBUPROFEN
     Indication: PYREXIA
     Route: 048
     Dates: start: 20171101, end: 20171101
  31. TYLENOL [Concomitant]
     Active Substance: ACETAMINOPHEN
     Indication: BACK PAIN
     Route: 048
     Dates: start: 20170824
  32. NEXPLANON [Concomitant]
     Active Substance: ETONOGESTREL
     Indication: CONTRACEPTION
     Route: 048
     Dates: start: 201701
  33. LEXAPRO [Concomitant]
     Active Substance: ESCITALOPRAM OXALATE
     Indication: DEPRESSION
     Dosage: 0.5 TAB ONCE IN DAY
     Route: 048
     Dates: start: 201707
  34. LEXAPRO [Concomitant]
     Active Substance: ESCITALOPRAM OXALATE
     Route: 065
  35. VITAMIN C [Concomitant]
     Active Substance: ASCORBIC ACID
     Dosage: 1000 UNIT
     Route: 048
  36. ENOXAPARIN [Concomitant]
     Active Substance: ENOXAPARIN
     Route: 058
     Dates: start: 20171101, end: 20171107

REACTIONS (1)
  - Sepsis [Recovered/Resolved]

NARRATIVE: CASE EVENT DATE: 20171030
